FAERS Safety Report 9629509 (Version 1)
Quarter: 2013Q4

REPORT INFORMATION
  Report Type: Spontaneous
  Country: NO (occurrence: NO)
  Receive Date: 20131017
  Receipt Date: 20131017
  Transmission Date: 20140711
  Serious: Yes (Hospitalization)
  Sender: FDA-Public Use
  Company Number: NO-EISAI INC-E2007-01353-SPO-NO

PATIENT
  Age: 33 Year
  Sex: Female

DRUGS (9)
  1. FYCOMPA (PERAMPANEL) [Suspect]
     Indication: PARTIAL SEIZURES
     Dosage: 2 MG/DAY
     Route: 048
     Dates: start: 20130903, end: 2013
  2. FYCOMPA (PERAMPANEL) [Suspect]
     Dosage: INCREASING Q WK BY 2 MG, UP 6 MG/DAY
     Route: 048
     Dates: start: 2013, end: 20130917
  3. FYCOMPA (PERAMPANEL) [Suspect]
     Dosage: 4 MG/DAY
     Route: 048
     Dates: start: 20130918, end: 20130922
  4. FYCOMPA (PERAMPANEL) [Suspect]
     Dosage: 2 MG/DAY
     Route: 048
     Dates: start: 20130923
  5. STESOLID [Concomitant]
     Indication: GRAND MAL CONVULSION
     Dosage: 20 MG PRN SEIZURE }4 MIN, OR SERIES OF SEIZURE
  6. FRISIUM [Concomitant]
     Indication: PARTIAL SEIZURES
     Route: 048
  7. SOBRIL [Concomitant]
     Indication: SLEEP DISORDER
     Dosage: 10 MG
     Route: 048
  8. IBUX [Concomitant]
     Indication: HEADACHE
     Dosage: 400 MG TID PRN (1200 MG TOTAL DOSE)
     Route: 048
  9. PARACET [Concomitant]
     Indication: HEADACHE
     Dosage: 1 G TID PRN (3 G TOTAL DOSE)
     Route: 048

REACTIONS (7)
  - Restlessness [Unknown]
  - Hypoaesthesia [Unknown]
  - Delusion [Unknown]
  - Gait disturbance [Unknown]
  - Confusional state [Unknown]
  - Anxiety [Unknown]
  - Dizziness [Unknown]
